FAERS Safety Report 5587882-5 (Version None)
Quarter: 2008Q1

REPORT INFORMATION
  Report Type: 
  Country: None (occurrence: None)
  Receive Date: 20080109
  Receipt Date: 20080109
  Transmission Date: 20080703
  Serious: Yes (Hospitalization)
  Sender: FDA-Public Use
  Company Number: None

PATIENT
  Age: 40 Year
  Sex: Female
  Weight: 58.0604 kg

DRUGS (2)
  1. HEPARIN LOCK-FLUSH [Suspect]
     Indication: ANTI-INFECTIVE THERAPY
     Dosage: 4-6 TIMES A DAY IV
     Route: 042
     Dates: start: 20071203, end: 20071210
  2. HEPARIN LOCK-FLUSH [Suspect]
     Indication: INTRAVENOUS CATHETER MANAGEMENT
     Dosage: 4-6 TIMES A DAY IV
     Route: 042
     Dates: start: 20071203, end: 20071210

REACTIONS (3)
  - MALAISE [None]
  - PHARMACEUTICAL PRODUCT COMPLAINT [None]
  - THERAPEUTIC PRODUCT CONTAMINATION [None]
